FAERS Safety Report 7298370-2 (Version None)
Quarter: 2011Q1

REPORT INFORMATION
  Report Type: 
  Country: None (occurrence: None)
  Receive Date: 20110217
  Receipt Date: 20110208
  Transmission Date: 20110831
  Serious: Yes (Hospitalization)
  Sender: FDA-Public Use
  Company Number: NL-US-EMD SERONO, INC.-7031485

PATIENT
  Sex: Female

DRUGS (13)
  1. CALCIUMCARBONAAT/COLECALCIFEROL (CALCIUM CARBONATE/COLECALCIFEROL) [Concomitant]
     Indication: OSTEOPOROSIS PROPHYLAXIS
     Route: 048
     Dates: start: 20100701
  2. CALCIUMCARBONAAT/COLECALCIFEROL (CALCIUM CARBONATE/COLECALCIFEROL) [Concomitant]
     Indication: VITAMIN D DECREASED
     Route: 048
  3. HYDROXOCOBALAMINE [Concomitant]
  4. VIT B12 (VITAMIN B12) [Concomitant]
  5. REBIF [Suspect]
     Indication: MULTIPLE SCLEROSIS
     Route: 058
     Dates: start: 20100816
  6. ACETYLSALILZURR [Concomitant]
     Indication: ANTICOAGULANT THERAPY
     Route: 048
     Dates: start: 20080101
  7. AMITRIPTYLINE [Concomitant]
     Indication: PAIN
     Route: 048
  8. RANITIDINE [Concomitant]
     Indication: DYSPEPSIA
     Route: 048
  9. LYNESTRENOL [Concomitant]
     Indication: CONTRACEPTION
  10. ETHINYL ESTRADIOL [Concomitant]
     Indication: CONTRACEPTION
  11. NAPROXEN [Concomitant]
  12. TRAMADOL [Concomitant]
     Route: 048
  13. METOCLOPRAMIDE HCL [Concomitant]
     Indication: NAUSEA

REACTIONS (2)
  - DYSPNOEA [None]
  - INSOMNIA [None]
